FAERS Safety Report 7702967-2 (Version None)
Quarter: 2011Q3

REPORT INFORMATION
  Report Type: 
  Country: None (occurrence: None)
  Receive Date: 20110823
  Receipt Date: 20110818
  Transmission Date: 20111222
  Serious: Yes (Death)
  Sender: FDA-Public Use
  Company Number: PHEH2011US02000

PATIENT
  Age: 79 Year
  Sex: Female
  Weight: 99 kg

DRUGS (1)
  1. RECLAST [Suspect]
     Indication: OSTEOPOROSIS
     Dosage: 5 MG/100 ML ONCE YEARLY
     Route: 042

REACTIONS (2)
  - GLOMERULAR FILTRATION RATE DECREASED [None]
  - RENAL FAILURE [None]
